FAERS Safety Report 6214816-2 (Version None)
Quarter: 2009Q2

REPORT INFORMATION
  Report Type: 
  Country: None (occurrence: None)
  Receive Date: 20090604
  Receipt Date: 20090526
  Transmission Date: 20091009
  Serious: Yes (Other)
  Sender: FDA-Public Use
  Company Number: US-PFIZER INC-2009202593

PATIENT
  Sex: Female
  Weight: 53.968 kg

DRUGS (14)
  1. GABAPENTIN [Suspect]
     Indication: VULVOVAGINAL PAIN
     Dosage: UNK
     Dates: end: 20090101
  2. CHANTIX [Suspect]
     Indication: SMOKING CESSATION THERAPY
     Dosage: 0.5 MG, 1X/DAY
     Dates: start: 20090418
  3. CHANTIX [Suspect]
     Dosage: 1 MG, 2X/DAY, EVERYDAY
     Route: 048
     Dates: start: 20090401
  4. AMITRIPTYLINE [Concomitant]
  5. PROMETHAZINE [Concomitant]
     Dosage: 25 MG, UNK
  6. EFFEXOR [Concomitant]
     Dosage: 300 MG, UNK
  7. REMERON [Concomitant]
     Dosage: 30 MG, UNK
  8. ACETYLSALICYLIC ACID [Concomitant]
     Dosage: 81 MG, UNK
  9. LIPITOR [Concomitant]
     Indication: BLOOD CHOLESTEROL
     Dosage: 80 MG, UNK
  10. SITAGLIPTIN PHOSPHATE [Concomitant]
     Indication: DIABETES MELLITUS
     Dosage: 50 MG, UNK
  11. CLONAZEPAM [Concomitant]
     Dosage: 1 MG, UNK
  12. TRICOR [Concomitant]
     Dosage: 48 MG, UNK
  13. LANSOPRAZOLE [Concomitant]
     Indication: GASTROOESOPHAGEAL REFLUX DISEASE
     Dosage: 500 MG, UNK
  14. LAMICTAL [Concomitant]
     Dosage: 300 MG, UNK

REACTIONS (2)
  - HOMICIDAL IDEATION [None]
  - LOSS OF CONSCIOUSNESS [None]
